FAERS Safety Report 5573242-X (Version None)
Quarter: 2007Q4

REPORT INFORMATION
  Report Type: 
  Country: None (occurrence: None)
  Receive Date: 20071220
  Receipt Date: 20071212
  Transmission Date: 20080405
  Serious: Yes (Hospitalization)
  Sender: FDA-Public Use
  Company Number: 2007-05695

PATIENT
  Age: 90 Year
  Sex: Female

DRUGS (2)
  1. FIORINAL [Suspect]
     Indication: HYPERTENSION
     Dosage: 75 MG, DAILY, ORAL
     Route: 048
     Dates: start: 19950101
  2. AMLODIPINE [Concomitant]

REACTIONS (3)
  - ANOREXIA [None]
  - INTESTINAL DIAPHRAGM DISEASE [None]
  - LARGE INTESTINAL OBSTRUCTION [None]
